FAERS Safety Report 5982249-X (Version None)
Quarter: 2008Q4

REPORT INFORMATION
  Report Type: 
  Country: None (occurrence: None)
  Receive Date: 20081208
  Receipt Date: 20080227
  Transmission Date: 20090506
  Serious: No
  Sender: FDA-Public Use
  Company Number: US-AMGEN-KDL266575

PATIENT
  Sex: Male

DRUGS (1)
  1. ENBREL [Suspect]
     Indication: PSORIASIS
     Route: 058
     Dates: start: 20071211

REACTIONS (7)
  - COUGH [None]
  - HEADACHE [None]
  - NASAL CONGESTION [None]
  - PAIN [None]
  - PSORIASIS [None]
  - PYREXIA [None]
  - RHINORRHOEA [None]
